FAERS Safety Report 21456037 (Version 19)
Quarter: 2024Q1

REPORT INFORMATION
  Report Type: Spontaneous
  Country: CA (occurrence: CA)
  Receive Date: 20221014
  Receipt Date: 20240322
  Transmission Date: 20240410
  Serious: Yes (Other)
  Sender: FDA-Public Use
  Company Number: CA-CELLTRION INC.-2022CA010131

PATIENT

DRUGS (19)
  1. INFLECTRA [Suspect]
     Active Substance: INFLIXIMAB-DYYB
     Indication: Crohn^s disease
     Dosage: 770 MG, AT Q 0,2,6 WEEKS, THEN EVERY 5 WEEKS
     Route: 042
     Dates: start: 20220617
  2. INFLECTRA [Suspect]
     Active Substance: INFLIXIMAB-DYYB
     Dosage: 770 MG, AT 0,2,6 WEEKS, THEN EVERY 5 WEEKS
     Route: 042
     Dates: start: 20220628
  3. INFLECTRA [Suspect]
     Active Substance: INFLIXIMAB-DYYB
     Dosage: 770 MG, AT 0,2,6 WEEKS, THEN EVERY 5 WEEKS
     Route: 042
     Dates: start: 20220726
  4. INFLECTRA [Suspect]
     Active Substance: INFLIXIMAB-DYYB
     Dosage: 770 MG, AT 0,2,6 WEEKS, THEN EVERY 5 WEEKS
     Route: 042
     Dates: start: 20220830
  5. INFLECTRA [Suspect]
     Active Substance: INFLIXIMAB-DYYB
     Dosage: 770 MG, Q 0,2,6 WEEKS, THEN EVERY 5 WEEKS
     Route: 042
     Dates: start: 20221019
  6. INFLECTRA [Suspect]
     Active Substance: INFLIXIMAB-DYYB
     Dosage: 770 MG, Q 0,2,6 WEEKS, THEN EVERY 5 WEEKS
     Route: 042
     Dates: start: 20221129
  7. INFLECTRA [Suspect]
     Active Substance: INFLIXIMAB-DYYB
     Dosage: 770 MG, Q 0,2,6 WEEKS, THEN EVERY 5 WEEKS
     Route: 042
     Dates: start: 20230104
  8. INFLECTRA [Suspect]
     Active Substance: INFLIXIMAB-DYYB
     Dosage: 770 MG, EVERY 5 WEEKS
     Route: 042
     Dates: start: 20230208
  9. INFLECTRA [Suspect]
     Active Substance: INFLIXIMAB-DYYB
     Dosage: 770 MG, EVERY 5 WEEKS
     Route: 042
     Dates: start: 20230315
  10. INFLECTRA [Suspect]
     Active Substance: INFLIXIMAB-DYYB
     Dosage: 770 MG, AFTER 7 WEEK
     Route: 042
     Dates: start: 20230505
  11. INFLECTRA [Suspect]
     Active Substance: INFLIXIMAB-DYYB
     Dosage: 770 MG, EVERY 5 WEEKS
     Route: 042
     Dates: start: 20230609
  12. INFLECTRA [Suspect]
     Active Substance: INFLIXIMAB-DYYB
     Dosage: 770 MG, EVERY 5 WEEKS
     Route: 042
     Dates: start: 20230714
  13. INFLECTRA [Suspect]
     Active Substance: INFLIXIMAB-DYYB
     Dosage: 770 MG, EVERY 5 WEEKS
     Route: 042
     Dates: start: 20230818
  14. INFLECTRA [Suspect]
     Active Substance: INFLIXIMAB-DYYB
     Dosage: 770 MG, EVERY 5 WEEKS
     Route: 042
     Dates: start: 20230922
  15. INFLECTRA [Suspect]
     Active Substance: INFLIXIMAB-DYYB
     Dosage: 770 MG, AFTER 4 WEEKS AND 6 DAYS
     Route: 042
     Dates: start: 20231026
  16. INFLECTRA [Suspect]
     Active Substance: INFLIXIMAB-DYYB
     Dosage: 700 MG, EVERY 5 WEEK
     Route: 042
     Dates: start: 20231130
  17. INFLECTRA [Suspect]
     Active Substance: INFLIXIMAB-DYYB
     Dosage: 770 MG, EVERY 5 WEEK
     Route: 042
     Dates: start: 20240104
  18. INFLECTRA [Suspect]
     Active Substance: INFLIXIMAB-DYYB
     Dosage: 770 MG, Q 0,2,6 WEEKS, THEN EVERY 5 WEEKS (770 MG, 5 WEEKS)
     Route: 042
     Dates: start: 20240208
  19. INFLECTRA [Suspect]
     Active Substance: INFLIXIMAB-DYYB
     Dosage: 770 MG, Q 0,2,6 WEEKS, THEN EVERY 5 WEEKS (770 MG, 5 WEEKS)
     Route: 042
     Dates: start: 20240314

REACTIONS (8)
  - Uveitis [Recovered/Resolved]
  - Urinary tract infection bacterial [Recovered/Resolved]
  - Lower respiratory tract infection [Unknown]
  - Condition aggravated [Not Recovered/Not Resolved]
  - Arthralgia [Recovered/Resolved]
  - Off label use [Unknown]
  - Off label use [Unknown]
  - Intentional product use issue [Unknown]

NARRATIVE: CASE EVENT DATE: 20220617
